FAERS Safety Report 12898759 (Version 3)
Quarter: 2017Q3

REPORT INFORMATION
  Report Type: Spontaneous
  Country: US (occurrence: US)
  Receive Date: 20161101
  Receipt Date: 20170703
  Transmission Date: 20171127
  Serious: Yes (Hospitalization, Other)
  Sender: FDA-Public Use
  Company Number: US-ASTRAZENECA-2016SF11874

PATIENT
  Age: 87 Year
  Sex: Female
  Weight: 61.2 kg

DRUGS (7)
  1. BRILINTA [Suspect]
     Active Substance: TICAGRELOR
     Indication: MYOCARDIAL INFARCTION
     Route: 048
  2. BRILINTA [Suspect]
     Active Substance: TICAGRELOR
     Indication: STENT PLACEMENT
     Route: 048
  3. BRILINTA [Suspect]
     Active Substance: TICAGRELOR
     Indication: ACUTE CORONARY SYNDROME
     Route: 048
     Dates: start: 2016
  4. BRILINTA [Suspect]
     Active Substance: TICAGRELOR
     Indication: STENT PLACEMENT
     Route: 048
     Dates: start: 2016
  5. BRILINTA [Suspect]
     Active Substance: TICAGRELOR
     Indication: MYOCARDIAL INFARCTION
     Route: 048
     Dates: start: 2016
  6. OXYGEN. [Concomitant]
     Active Substance: OXYGEN
  7. BRILINTA [Suspect]
     Active Substance: TICAGRELOR
     Indication: ACUTE CORONARY SYNDROME
     Route: 048

REACTIONS (12)
  - Pleural effusion [Recovered/Resolved]
  - Myocardial infarction [Recovered/Resolved]
  - Pericardial effusion [Recovered/Resolved]
  - Hypoaesthesia [Unknown]
  - Sinusitis [Unknown]
  - Body height decreased [Unknown]
  - Arthropathy [Unknown]
  - Fear [Unknown]
  - Amnesia [Unknown]
  - Eyelid ptosis [Recovered/Resolved]
  - Dry mouth [Unknown]
  - Peripheral swelling [Unknown]

NARRATIVE: CASE EVENT DATE: 2017
